FAERS Safety Report 10786015 (Version 1)
Quarter: 2015Q1

REPORT INFORMATION
  Report Type: Spontaneous
  Country: US (occurrence: US)
  Receive Date: 20150211
  Receipt Date: 20150211
  Transmission Date: 20150721
  Serious: No
  Sender: FDA-Public Use
  Company Number: US-MYLANLABS-2014M1008716

PATIENT
  Age: 39 Year
  Sex: Female
  Weight: 68.27 kg

DRUGS (1)
  1. XULANE [Suspect]
     Active Substance: ETHINYL ESTRADIOL\NORELGESTROMIN
     Indication: CONTRACEPTION
     Dosage: 150/35 ?G, QD, CHANGE QW FOR 3W, 1 W OFF; REPEAT
     Route: 062
     Dates: start: 20140921

REACTIONS (3)
  - Headache [Not Recovered/Not Resolved]
  - Frustration [Not Recovered/Not Resolved]
  - Irritability [Not Recovered/Not Resolved]

NARRATIVE: CASE EVENT DATE: 20141006
